FAERS Safety Report 4945090-2 (Version None)
Quarter: 2006Q1

REPORT INFORMATION
  Report Type: 
  Country: None (occurrence: None)
  Receive Date: 20060316
  Receipt Date: 20060215
  Transmission Date: 20060701
  Serious: Yes (Death, Hospitalization, Other)
  Sender: FDA-Public Use
  Company Number: PHNU2006DE01031

PATIENT
  Age: 31 Year
  Sex: Female

DRUGS (1)
  1. DICLOFENAC SODIUM [Suspect]
     Route: 030

REACTIONS (30)
  - ANURIA [None]
  - APPLICATION SITE PAIN [None]
  - APPLICATION SITE SWELLING [None]
  - ASCITES [None]
  - BLOOD CREATINE PHOSPHOKINASE INCREASED [None]
  - C-REACTIVE PROTEIN INCREASED [None]
  - CELLULITIS [None]
  - CEREBRAL HAEMORRHAGE [None]
  - CHILLS [None]
  - COAGULOPATHY [None]
  - CONDITION AGGRAVATED [None]
  - CORNEAL INFECTION [None]
  - HEPATIC FAILURE [None]
  - HYPOGLYCAEMIA [None]
  - INFECTION [None]
  - INFLAMMATION [None]
  - LEUKOPENIA [None]
  - MULTI-ORGAN FAILURE [None]
  - MUSCLE ATROPHY [None]
  - NERVOUS SYSTEM DISORDER [None]
  - PAIN [None]
  - PYREXIA [None]
  - RHABDOMYOLYSIS [None]
  - SEPSIS [None]
  - SEPTIC SHOCK [None]
  - SHOCK [None]
  - SOMNOLENCE [None]
  - THROMBOCYTOPENIA [None]
  - TOXIC SHOCK SYNDROME STREPTOCOCCAL [None]
  - ULCERATIVE KERATITIS [None]
